FAERS Safety Report 8536671-8 (Version None)
Quarter: 2012Q3

REPORT INFORMATION
  Report Type: 
  Country: None (occurrence: None)
  Receive Date: 20120725
  Receipt Date: 20120718
  Transmission Date: 20120928
  Serious: Yes (Hospitalization)
  Sender: FDA-Public Use
  Company Number: US-ROCHE-1011760

PATIENT
  Sex: Male
  Weight: 100.1 kg

DRUGS (2)
  1. VEMURAFENIB [Suspect]
     Route: 048
     Dates: start: 20111213
  2. VEMURAFENIB [Suspect]
     Indication: NEOPLASM
     Dosage: TOTAL DOSE IN MOST RECENT CYCLE: 49.920 MG
     Route: 048
     Dates: start: 20090505, end: 20111105

REACTIONS (3)
  - DUODENAL ULCER [None]
  - GASTROINTESTINAL HAEMORRHAGE [None]
  - COLON ADENOMA [None]
